FAERS Safety Report 11762397 (Version 3)
Quarter: 2015Q4

REPORT INFORMATION
  Report Type: Spontaneous
  Country: JP (occurrence: JP)
  Receive Date: 20151120
  Receipt Date: 20151223
  Transmission Date: 20160304
  Serious: Yes (Death, Other)
  Sender: FDA-Public Use
  Company Number: JP-BAXTER-2015BAX062773

PATIENT
  Age: 26 Year
  Sex: Male

DRUGS (19)
  1. TS-1 [Suspect]
     Active Substance: GIMERACIL\OTERACIL\TEGAFUR
     Indication: GASTRIC CANCER
     Dosage: PER DAY
     Route: 048
     Dates: start: 20120628, end: 20131024
  2. CISPLATIN. [Suspect]
     Active Substance: CISPLATIN
     Indication: TESTIS CANCER
     Dosage: PER DAY; [100 MG^M2?8]; 1ST OF 7 COURSES OF BEP THERAPY
     Route: 041
     Dates: start: 20030923, end: 200403
  3. NEDAPLATIN [Suspect]
     Active Substance: NEDAPLATIN
     Dosage: PER DAY; 3RD COURSE OF IRN THERAPY
     Route: 041
     Dates: start: 20110913
  4. GEMZAR [Suspect]
     Active Substance: GEMCITABINE HYDROCHLORIDE
     Indication: TESTIS CANCER
     Dosage: PER DAY; 1ST OF 5 COURSES OF TGN THERAPY
     Route: 041
     Dates: start: 20111116, end: 201204
  5. CELLTOP 25 MG, CAPSULE [Suspect]
     Active Substance: ETOPOSIDE
     Indication: TESTIS CANCER
     Dosage: [500 M2?8]; 1ST OF 7 COURSES OF BEP THERAPY
     Route: 041
     Dates: start: 20030923, end: 200403
  6. NEDAPLATIN [Suspect]
     Active Substance: NEDAPLATIN
     Indication: TESTIS CANCER
     Dosage: PER DAY; 1ST OF 7 COURSES OF TIN THERAPY
     Route: 041
     Dates: start: 201011
  7. IRINOTECAN HYDROCHLORIDE HYDRATE [Concomitant]
     Active Substance: IRINOTECAN HYDROCHLORIDE
     Indication: TESTIS CANCER
     Dosage: 1ST AND 2ND COURSE OF IRN THERAPY
     Route: 041
  8. CELLTOP 25 MG, CAPSULE [Suspect]
     Active Substance: ETOPOSIDE
     Dosage: 8 COURSES OF BEP THERAPY
     Route: 041
     Dates: start: 20040420
  9. IRINOTECAN HYDROCHLORIDE HYDRATE [Concomitant]
     Active Substance: IRINOTECAN HYDROCHLORIDE
     Dosage: 3RD COURSE OF IRN THERAPY
     Route: 041
     Dates: start: 20110913, end: 20111115
  10. BLEOMYCIN [Suspect]
     Active Substance: BLEOMYCIN SULFATE
     Indication: TESTIS CANCER
     Dosage: PER DAY; 1ST OF 7 COURSES OF BEP THERAPY
     Route: 041
     Dates: start: 20030923, end: 20031202
  11. PACLITAXEL. [Suspect]
     Active Substance: PACLITAXEL
     Dosage: 1ST OF 5 COURSES OF TGN THERAPY
     Route: 041
     Dates: start: 20111116, end: 201204
  12. IRINOTECAN HYDROCHLORIDE HYDRATE [Concomitant]
     Active Substance: IRINOTECAN HYDROCHLORIDE
     Dosage: 4TH AND 5TH COURSE OF IRN THERAPY
     Route: 041
  13. BLEOMYCIN [Suspect]
     Active Substance: BLEOMYCIN SULFATE
     Dosage: 8TH COURSES OF BEP THERAPY
     Route: 041
     Dates: start: 20040420
  14. NEDAPLATIN [Suspect]
     Active Substance: NEDAPLATIN
     Dosage: PER DAY; 1ST AND 2ND  COURSE OF IRN THERAPY
     Route: 041
  15. NEDAPLATIN [Suspect]
     Active Substance: NEDAPLATIN
     Dosage: PER DAY; 4TH AND 5TH COURSE OF IRN THERAPY
     Route: 041
  16. IFEX [Suspect]
     Active Substance: IFOSFAMIDE
     Indication: TESTIS CANCER
     Dosage: PER DAY; 1ST OF 7 COURSES OF TIN THERAPY
     Route: 041
     Dates: start: 20101029, end: 20110531
  17. CISPLATIN. [Suspect]
     Active Substance: CISPLATIN
     Dosage: 8TH COURSES OF BEP THERAPY
     Route: 041
     Dates: start: 20040420
  18. NEDAPLATIN [Suspect]
     Active Substance: NEDAPLATIN
     Dosage: PER DAY; 1ST OF 5 COURSES OF TGN THERAPY
     Route: 041
     Dates: start: 20111116, end: 201204
  19. PACLITAXEL. [Suspect]
     Active Substance: PACLITAXEL
     Indication: TESTIS CANCER
     Dosage: PER DAY; 1ST OF 7 COURSES OF TIN THERAPY
     Route: 041
     Dates: start: 201011

REACTIONS (4)
  - Myelodysplastic syndrome [Fatal]
  - Gastric cancer [Recovered/Resolved]
  - Metastases to lymph nodes [Unknown]
  - Lymphadenopathy [Unknown]

NARRATIVE: CASE EVENT DATE: 200604
